FAERS Safety Report 4561301-X (Version None)
Quarter: 2005Q1

REPORT INFORMATION
  Report Type: 
  Country: None (occurrence: None)
  Receive Date: 20050121
  Receipt Date: 20050103
  Transmission Date: 20050727
  Serious: Yes (Hospitalization)
  Sender: FDA-Public Use
  Company Number: A01200500006

PATIENT
  Age: 52 Year
  Sex: Male

DRUGS (4)
  1. STILNOX - (ZOLPIDEM) [Suspect]
     Indication: INSOMNIA
  2. (PEGINTERFERON ALFA-2B) - POWDER [Suspect]
     Indication: HEPATITIS C
     Dosage: 120 MCG, SUBCUTANEOUS
     Route: 058
     Dates: start: 20040407, end: 20041118
  3. POWDER [Suspect]
     Indication: HEPATITIS C
     Dosage: 39 MCG, ORAL
     Route: 048
     Dates: start: 20041119, end: 20041126
  4. RIBAVIRIN [Suspect]
     Indication: HEPATITIS C
     Dates: start: 20040407, end: 20041122

REACTIONS (11)
  - ASCITES [None]
  - BLOOD ALBUMIN DECREASED [None]
  - BLOOD GLUCOSE INCREASED [None]
  - CHEST PAIN [None]
  - CONFUSIONAL STATE [None]
  - DEPRESSION [None]
  - DIARRHOEA [None]
  - FOLLICULITIS [None]
  - HAEMOGLOBIN DECREASED [None]
  - JOINT SWELLING [None]
  - OEDEMA PERIPHERAL [None]
